FAERS Safety Report 6763121-4 (Version None)
Quarter: 2010Q2

REPORT INFORMATION
  Report Type: 
  Country: None (occurrence: None)
  Receive Date: 20100608
  Receipt Date: 20100608
  Transmission Date: 20101027
  Serious: Yes (Other)
  Sender: FDA-Public Use
  Company Number: None

PATIENT
  Age: 46 Year
  Sex: Female
  Weight: 76.2043 kg

DRUGS (3)
  1. CIPRO [Suspect]
     Indication: EAR INFECTION
     Dosage: 500 MG 2 X DAY PO
     Route: 048
     Dates: start: 19910822, end: 19990416
  2. LEVAQUIN [Suspect]
     Indication: EAR INFECTION
     Dosage: 500MG 1X DAY PO
     Route: 048
     Dates: start: 19980722, end: 20010613
  3. LEVAQUIN [Suspect]
     Indication: MUSCULOSKELETAL CHEST PAIN
     Dosage: 500MG 1X DAY PO
     Route: 048
     Dates: start: 19980722, end: 20010613

REACTIONS (46)
  - AMNESIA [None]
  - ANHEDONIA [None]
  - ARTHRALGIA [None]
  - ARTHRITIS [None]
  - ASTHENIA [None]
  - BALANCE DISORDER [None]
  - BURNING SENSATION [None]
  - COGNITIVE DISORDER [None]
  - CRYING [None]
  - DEAFNESS UNILATERAL [None]
  - DRUG HYPERSENSITIVITY [None]
  - DYSKINESIA [None]
  - DYSPEPSIA [None]
  - DYSPHAGIA [None]
  - EAR DISCOMFORT [None]
  - EAR INFECTION [None]
  - ERYTHEMA OF EYELID [None]
  - FATIGUE [None]
  - FEELING ABNORMAL [None]
  - FEELING COLD [None]
  - FOOD INTOLERANCE [None]
  - GASTROOESOPHAGEAL REFLUX DISEASE [None]
  - HYPERTENSION [None]
  - HYPOAESTHESIA [None]
  - HYPOAESTHESIA ORAL [None]
  - HYPOTENSION [None]
  - INSOMNIA [None]
  - INTERVERTEBRAL DISC PROTRUSION [None]
  - MENISCUS LESION [None]
  - MUSCLE SPASMS [None]
  - MUSCLE TWITCHING [None]
  - MUSCULAR WEAKNESS [None]
  - MUSCULOSKELETAL PAIN [None]
  - MYALGIA [None]
  - NAIL DISCOLOURATION [None]
  - PAIN [None]
  - PAIN IN EXTREMITY [None]
  - POST-TRAUMATIC STRESS DISORDER [None]
  - PSORIATIC ARTHROPATHY [None]
  - REPETITIVE STRAIN INJURY [None]
  - SHOCK [None]
  - TENDON RUPTURE [None]
  - TENDONITIS [None]
  - TOXIC NEUROPATHY [None]
  - VAGINAL DISORDER [None]
  - VISUAL IMPAIRMENT [None]
